FAERS Safety Report 10554628 (Version 1)
Quarter: 2014Q4

REPORT INFORMATION
  Report Type: Spontaneous
  Country: US (occurrence: None)
  Receive Date: 20141023
  Receipt Date: 20141023
  Transmission Date: 20150529
  Serious: No
  Sender: FDA-Public Use
  Company Number: AP356-01032-SPO-US

PATIENT
  Age: 65 Year
  Sex: Male
  Weight: 152 kg

DRUGS (7)
  1. FELDENE (PIROXICAM) [Concomitant]
  2. BELVIQ [Suspect]
     Active Substance: LORCASERIN HYDROCHLORIDE
     Indication: WEIGHT DECREASED
     Dosage: 2 IN 1 D
     Route: 048
     Dates: start: 2014, end: 20140707
  3. LASIX [Concomitant]
     Active Substance: FUROSEMIDE
  4. ACE INHIBITOR [Concomitant]
     Active Substance: UNSPECIFIED INGREDIENT
  5. TOPROL (METOPROLOL SUCCINATE) [Concomitant]
  6. GLUCOPHAGE (METFORMIN) [Concomitant]
  7. PRILOSEC (OMEPRAZOLE) [Concomitant]
     Active Substance: OMEPRAZOLE MAGNESIUM

REACTIONS (1)
  - Urinary retention [None]

NARRATIVE: CASE EVENT DATE: 20140708
